FAERS Safety Report 20494978 (Version 4)
Quarter: 2022Q1

REPORT INFORMATION
  Report Type: Report from Study
  Country: US (occurrence: US)
  Receive Date: 20220221
  Receipt Date: 20220316
  Transmission Date: 20220423
  Serious: Yes (Hospitalization)
  Sender: FDA-Public Use
  Company Number: US-BAYER-2022A024006

PATIENT
  Age: 83 Year
  Sex: Female
  Weight: 63.946 kg

DRUGS (6)
  1. ADEMPAS [Suspect]
     Active Substance: RIOCIGUAT
     Indication: Pulmonary arterial hypertension
     Dosage: UNK
     Dates: start: 20210628
  2. ADEMPAS [Suspect]
     Active Substance: RIOCIGUAT
     Indication: Pulmonary arterial hypertension
     Dosage: 2 MG, TID
     Route: 048
  3. ADEMPAS [Suspect]
     Active Substance: RIOCIGUAT
     Indication: Pulmonary arterial hypertension
     Dosage: 2 MG, TID
     Route: 048
  4. UPTRAVI [Suspect]
     Active Substance: SELEXIPAG
     Dosage: UNK
  5. UPTRAVI [Suspect]
     Active Substance: SELEXIPAG
     Dosage: 1000 ?G, BID
     Dates: start: 20220305
  6. OPSUMIT [Concomitant]
     Active Substance: MACITENTAN
     Dosage: UNK

REACTIONS (10)
  - Dyspnoea [None]
  - Dehydration [None]
  - Headache [Not Recovered/Not Resolved]
  - Vomiting [None]
  - Myalgia [None]
  - Diarrhoea [Not Recovered/Not Resolved]
  - Nausea [Not Recovered/Not Resolved]
  - Dizziness [None]
  - Insomnia [None]
  - Feeling abnormal [None]
